FAERS Safety Report 18334160 (Version 1)
Quarter: 2020Q4

REPORT INFORMATION
  Report Type: Report from Study
  Country: US (occurrence: US)
  Receive Date: 20201001
  Receipt Date: 20201001
  Transmission Date: 20210113
  Serious: Yes (Hospitalization, Other)
  Sender: FDA-Public Use
  Company Number: US-EMD SERONO-E2B_80055864

PATIENT
  Age: 69 Year
  Sex: Male

DRUGS (1)
  1. REBIF [Suspect]
     Active Substance: INTERFERON BETA-1A
     Indication: MULTIPLE SCLEROSIS
     Dosage: MANUAL
     Route: 058
     Dates: start: 20090309, end: 20200730

REACTIONS (7)
  - Chronic obstructive pulmonary disease [Unknown]
  - Injection site mass [Not Recovered/Not Resolved]
  - Rash [Recovering/Resolving]
  - Lack of injection site rotation [Recovered/Resolved]
  - Congenital cystic kidney disease [Not Recovered/Not Resolved]
  - Gallbladder disorder [Unknown]
  - Renal failure [Unknown]

NARRATIVE: CASE EVENT DATE: 201910
